FAERS Safety Report 4477572-4 (Version None)
Quarter: 2004Q4

REPORT INFORMATION
  Report Type: 
  Country: None (occurrence: None)
  Receive Date: 20041012
  Receipt Date: 20041001
  Transmission Date: 20050328
  Serious: No
  Sender: FDA-Public Use
  Company Number: A001-002-006236

PATIENT
  Age: 75 Year
  Sex: Male

DRUGS (9)
  1. ARICEPT [Suspect]
     Dosage: ORAL
     Route: 048
  2. LEVOFLOXACIN [Suspect]
     Indication: URINARY TRACT INFECTION
     Dosage: 500 MG
  3. ASPIRIN [Concomitant]
  4. DOXAZOSIN (DOXAZOSIN) [Concomitant]
  5. FOLATE (FOLATE SODIUM) [Concomitant]
  6. CITALOPRAM [Concomitant]
  7. GABAPENTIN [Concomitant]
  8. DIVALPROEX SODIUM [Concomitant]
  9. RANITIDINE [Concomitant]

REACTIONS (5)
  - BLOOD CREATININE INCREASED [None]
  - BLOOD UREA INCREASED [None]
  - CONDITION AGGRAVATED [None]
  - CONVULSION [None]
  - DRUG INTERACTION [None]
